FAERS Safety Report 8014724-0 (Version None)
Quarter: 2011Q4

REPORT INFORMATION
  Report Type: 
  Country: None (occurrence: None)
  Receive Date: 20111229
  Receipt Date: 20111220
  Transmission Date: 20120403
  Serious: Yes (Hospitalization)
  Sender: FDA-Public Use
  Company Number: US-ABBOTT-11P-163-0884376-01

PATIENT
  Sex: Female
  Weight: 96.248 kg

DRUGS (4)
  1. EFFEXOR [Concomitant]
     Indication: BIPOLAR DISORDER
     Dates: start: 20080402
  2. HUMIRA [Suspect]
     Indication: PSORIASIS
     Route: 058
     Dates: start: 20110210, end: 20110526
  3. EFFEXOR [Concomitant]
     Indication: POST-TRAUMATIC STRESS DISORDER
  4. EFFEXOR [Concomitant]
     Indication: DEPRESSION

REACTIONS (1)
  - UTERINE LEIOMYOMA [None]
